FAERS Safety Report 8009993-7 (Version None)
Quarter: 2011Q4

REPORT INFORMATION
  Report Type: 
  Country: None (occurrence: None)
  Receive Date: 20111228
  Receipt Date: 20111214
  Transmission Date: 20120403
  Serious: No
  Sender: FDA-Public Use
  Company Number: US-ELI_LILLY_AND_COMPANY-US201110004957

PATIENT
  Sex: Female
  Weight: 56.689 kg

DRUGS (17)
  1. FOLIC ACID [Concomitant]
  2. PREDNISONE TAB [Concomitant]
     Dosage: 5 MG, QD
  3. OMEPRAZOLE [Concomitant]
  4. LYRICA [Concomitant]
  5. PLAQUENIL [Concomitant]
  6. SEROQUEL [Concomitant]
  7. OXYTROL [Concomitant]
  8. TRAZODONE HCL [Concomitant]
  9. FORTEO [Suspect]
     Dosage: 20 UG, QD
     Route: 058
     Dates: start: 20110511
  10. IMURAN [Concomitant]
  11. CITOPRAM [Concomitant]
  12. DIAZEPAM [Concomitant]
  13. PRAVACHOL [Concomitant]
  14. CARDURA [Concomitant]
  15. ADDERALL 5 [Concomitant]
  16. PILOCARPINE [Concomitant]
  17. EFFEXOR [Concomitant]

REACTIONS (2)
  - FALL [None]
  - ANKLE FRACTURE [None]
